FAERS Safety Report 26124864 (Version 1)
Quarter: 2025Q4

REPORT INFORMATION
  Report Type: Spontaneous
  Country: US (occurrence: US)
  Receive Date: 20251205
  Receipt Date: 20251205
  Transmission Date: 20260118
  Serious: No
  Sender: TEVA
  Company Number: US-TEVA-VS-3395238

PATIENT
  Age: 63 Year
  Sex: Female
  Weight: 81.64 kg

DRUGS (1)
  1. QVAR REDIHALER [Suspect]
     Active Substance: BECLOMETHASONE DIPROPIONATE
     Indication: Asthma
     Dosage: 2 PUFFS BY MOUTH
     Route: 048

REACTIONS (2)
  - Mouth injury [Unknown]
  - Wrong technique in product usage process [Unknown]
